FAERS Safety Report 4452433-5 (Version None)
Quarter: 2004Q3

REPORT INFORMATION
  Report Type: 
  Country: None (occurrence: None)
  Receive Date: 20040915
  Receipt Date: 20040910
  Transmission Date: 20050211
  Serious: Yes (Hospitalization, Other)
  Sender: FDA-Public Use
  Company Number: 2004-06-2132

PATIENT
  Age: 55 Year
  Sex: Female
  Weight: 55 kg

DRUGS (7)
  1. REBETOL [Suspect]
     Indication: HEPATITIS C
     Dosage: 600 MG ORAL
     Route: 048
     Dates: start: 20040412, end: 20040619
  2. INTRON A [Suspect]
     Indication: HEPATITIS C
     Dosage: 6 MU QD-TIW* INTRAMUSCUL
     Route: 030
     Dates: start: 20040412, end: 20040426
  3. INTRON A [Suspect]
     Indication: HEPATITIS C
     Dosage: 6 MU QD-TIW* INTRAMUSCUL
     Route: 030
     Dates: start: 20040412, end: 20040619
  4. INTRON A [Suspect]
     Indication: HEPATITIS C
     Dosage: 6 MU QD-TIW* INTRAMUSCUL
     Route: 030
     Dates: start: 20040428, end: 20040619
  5. URSO TABLET 600 MG [Concomitant]
  6. MINOPHAGEN [Concomitant]
  7. VITAMEDIN CAPSULE [Concomitant]

REACTIONS (10)
  - ANOREXIA [None]
  - DYSSTASIA [None]
  - HYPERTENSION [None]
  - INSOMNIA [None]
  - MALAISE [None]
  - NAUSEA [None]
  - NYSTAGMUS [None]
  - PYREXIA [None]
  - VERTIGO [None]
  - VOMITING [None]
